FAERS Safety Report 8482648-0 (Version None)
Quarter: 2012Q3

REPORT INFORMATION
  Report Type: 
  Country: None (occurrence: None)
  Receive Date: 20120702
  Receipt Date: 20120627
  Transmission Date: 20120928
  Serious: Yes (Other)
  Sender: FDA-Public Use
  Company Number: US-MERCK-1206USA05116

PATIENT
  Sex: Female

DRUGS (1)
  1. FOSAPREPITANT DIMEGLUMINE [Suspect]
     Route: 041

REACTIONS (1)
  - CONVULSION [None]
